FAERS Safety Report 23082048 (Version 8)
Quarter: 2024Q2

REPORT INFORMATION
  Report Type: Report from Study
  Country: MX (occurrence: MX)
  Receive Date: 20231019
  Receipt Date: 20240502
  Transmission Date: 20240715
  Serious: Yes (Other)
  Sender: FDA-Public Use
  Company Number: MX-TAKEDA-MX201937669

PATIENT
  Age: 25 Year
  Sex: Male
  Weight: 45 kg

DRUGS (12)
  1. IDURSULFASE [Suspect]
     Active Substance: IDURSULFASE
     Indication: Mucopolysaccharidosis II
     Dosage: 3 DOSAGE FORM, 1/WEEK
     Route: 042
     Dates: start: 20110801
  2. IDURSULFASE [Suspect]
     Active Substance: IDURSULFASE
     Dosage: 18 MILLIGRAM, 1/WEEK
     Route: 042
     Dates: start: 20131001
  3. IDURSULFASE [Suspect]
     Active Substance: IDURSULFASE
     Dosage: 23 MILLIGRAM, 1/WEEK
     Route: 042
     Dates: start: 201310
  4. IDURSULFASE [Suspect]
     Active Substance: IDURSULFASE
     Dosage: 1 DOSAGE FORM, 1/WEEK
     Route: 042
  5. IDURSULFASE [Suspect]
     Active Substance: IDURSULFASE
     Dosage: 0.5 MILLIGRAM/KILOGRAM, Q7WEEKS
     Route: 042
  6. IDURSULFASE [Suspect]
     Active Substance: IDURSULFASE
     Dosage: 23 MILLIGRAM, 1/WEEK
     Route: 042
  7. IDURSULFASE [Suspect]
     Active Substance: IDURSULFASE
     Dosage: UNK UNK, 1/WEEK
     Route: 042
  8. IDURSULFASE [Suspect]
     Active Substance: IDURSULFASE
     Dosage: UNK
     Route: 042
  9. IDURSULFASE [Suspect]
     Active Substance: IDURSULFASE
     Dosage: 23 MILLIGRAM, 1/WEEK
     Route: 042
  10. IDURSULFASE [Suspect]
     Active Substance: IDURSULFASE
     Dosage: 18 MILLIGRAM, 1/WEEK
     Route: 042
  11. HYDROCORTISONE [Concomitant]
     Active Substance: HYDROCORTISONE
     Indication: Premedication
     Dosage: 100 MILLIGRAM, 1/WEEK
     Route: 065
  12. DIPHENHYDRAMINE [Concomitant]
     Active Substance: DIPHENHYDRAMINE
     Dosage: 25 MILLIGRAM
     Route: 065

REACTIONS (29)
  - Vascular device infection [Not Recovered/Not Resolved]
  - Puncture site haemorrhage [Recovered/Resolved]
  - Contusion [Not Recovered/Not Resolved]
  - Pain [Not Recovered/Not Resolved]
  - Discomfort [Not Recovered/Not Resolved]
  - Hyperaemia [Not Recovered/Not Resolved]
  - Catheter site erythema [Not Recovered/Not Resolved]
  - Catheter site oedema [Not Recovered/Not Resolved]
  - Tissue rupture [Not Recovered/Not Resolved]
  - Pyrexia [Not Recovered/Not Resolved]
  - Back pain [Recovered/Resolved]
  - Malaise [Recovering/Resolving]
  - Catheter site scab [Recovered/Resolved]
  - Oedema [Not Recovered/Not Resolved]
  - Anxiety [Unknown]
  - Fear [Unknown]
  - Poor venous access [Unknown]
  - Fatigue [Recovered/Resolved]
  - Dyspnoea [Recovering/Resolving]
  - Chest pain [Recovered/Resolved]
  - Catheter site pain [Recovering/Resolving]
  - Inguinal hernia [Recovered/Resolved]
  - Influenza [Recovering/Resolving]
  - Secretion discharge [Recovering/Resolving]
  - Decreased appetite [Recovered/Resolved]
  - Product availability issue [Not Recovered/Not Resolved]
  - Chills [Recovered/Resolved]
  - Abdominal pain [Recovered/Resolved]
  - Headache [Recovered/Resolved]

NARRATIVE: CASE EVENT DATE: 20191024
